FAERS Safety Report 18617533 (Version 1)
Quarter: 2020Q4

REPORT INFORMATION
  Report Type: Spontaneous
  Country: US (occurrence: US)
  Receive Date: 20201214
  Receipt Date: 20201214
  Transmission Date: 20210114
  Serious: No
  Sender: FDA-Public Use
  Company Number: None

PATIENT
  Age: 37 Year
  Sex: Male
  Weight: 83.25 kg

DRUGS (4)
  1. NATURE^S WAY ALIVE MEN^S [Concomitant]
  2. TRAZODONE 50MG GENERIC OF DESYREL [Suspect]
     Active Substance: TRAZODONE HYDROCHLORIDE
     Indication: SLEEP DISORDER
     Dosage: ?          QUANTITY:1 TABLET(S);?
     Route: 048
     Dates: start: 20201205, end: 20201205
  3. GUMMY COMPLETE MULTIVITAMINS [Concomitant]
  4. AIRBORNE ORIGINAL VERY ERRY CHEWABLE TABLETS [Concomitant]

REACTIONS (1)
  - Priapism [None]

NARRATIVE: CASE EVENT DATE: 20201206
